FAERS Safety Report 9302629 (Version 2)
Quarter: 2013Q3

REPORT INFORMATION
  Report Type: Spontaneous
  Country: BR (occurrence: BR)
  Receive Date: 20130522
  Receipt Date: 20130809
  Transmission Date: 20140515
  Serious: No
  Sender: FDA-Public Use
  Company Number: BR-BAYER-2013-061217

PATIENT
  Age: 29 Year
  Sex: Female

DRUGS (2)
  1. GINO-CANESTEN [Suspect]
     Indication: VULVOVAGINAL PRURITUS
     Dosage: 6 DOSES FOR 6 DAYS AT NIGHT, QD
     Route: 067
     Dates: start: 2008, end: 2008
  2. GINO-CANESTEN [Suspect]
     Indication: VAGINAL DISCHARGE

REACTIONS (1)
  - Exposure during pregnancy [None]
